FAERS Safety Report 22042713 (Version 1)
Quarter: 2023Q1

REPORT INFORMATION
  Report Type: Other
  Country: US (occurrence: None)
  Receive Date: 20230228
  Receipt Date: 20230228
  Transmission Date: 20230418
  Serious: Yes (Other)
  Sender: FDA-Public Use
  Company Number: US-ROCHE-3288996

PATIENT
  Age: 62 Year
  Sex: Female

DRUGS (1)
  1. OCREVUS [Suspect]
     Active Substance: OCRELIZUMAB
     Indication: Primary progressive multiple sclerosis
     Dosage: 300 MG INFUSED DAY 1 THEN 300 MG INFUSED DAY 15, 600 MG INFUSED Q 6 MONTHS
     Route: 042
     Dates: start: 20190722

REACTIONS (1)
  - Urinary tract infection [Not Recovered/Not Resolved]
